FAERS Safety Report 8250666-3 (Version None)
Quarter: 2012Q2

REPORT INFORMATION
  Report Type: 
  Country: None (occurrence: None)
  Receive Date: 20120402
  Receipt Date: 20120321
  Transmission Date: 20120825
  Serious: Yes (Life-Threatening, Hospitalization)
  Sender: FDA-Public Use
  Company Number: JP-ROCHE-1051710

PATIENT
  Sex: Female
  Weight: 54 kg

DRUGS (18)
  1. ACTEMRA [Suspect]
     Route: 065
     Dates: start: 20120315
  2. ALENDRONATE SODIUM [Concomitant]
     Dates: start: 20100331
  3. ATORVASTATIN CALCIUM [Concomitant]
     Dates: start: 20100331
  4. OCRELIZUMAB [Suspect]
     Indication: RHEUMATOID ARTHRITIS
     Dosage: FIRST DOSE OF FIRST CYCLE
     Route: 042
     Dates: start: 20081202
  5. PREDNISOLONE [Suspect]
     Indication: PRODUCT USED FOR UNKNOWN INDICATION
     Route: 065
     Dates: start: 20111208
  6. METHOTREXATE [Concomitant]
     Dates: start: 20111027
  7. OCRELIZUMAB [Suspect]
     Dosage: FIRST DOSE OF SECOND CYCLE
     Route: 042
     Dates: start: 20090515
  8. OCRELIZUMAB [Suspect]
     Dosage: SECOND DOSE OF SECOND CYCLE
     Route: 042
     Dates: start: 20090529
  9. INFLIXIMAB [Suspect]
     Indication: PRODUCT USED FOR UNKNOWN INDICATION
     Route: 065
     Dates: start: 20091202
  10. ALFACALCIDOL [Concomitant]
     Dates: start: 20100331
  11. CLARITHROMYCIN [Concomitant]
     Dates: start: 20110216
  12. FOLIC ACID [Concomitant]
     Dates: start: 20100331
  13. KETOPROFEN [Concomitant]
     Dates: start: 20061225
  14. CELECOXIB [Concomitant]
     Dates: start: 20100727
  15. ACTEMRA [Suspect]
     Indication: PRODUCT USED FOR UNKNOWN INDICATION
     Route: 065
     Dates: start: 20120216
  16. INFLIXIMAB [Suspect]
     Route: 065
     Dates: start: 20111208, end: 20111208
  17. LANSOPRAZOLE [Concomitant]
     Dates: start: 20100331
  18. OCRELIZUMAB [Suspect]
     Dosage: SECOND DOSE OF FIRST CYCLE
     Route: 042
     Dates: start: 20081216

REACTIONS (3)
  - INFECTIOUS PERITONITIS [None]
  - SEPTIC SHOCK [None]
  - DIVERTICULUM INTESTINAL [None]
